FAERS Safety Report 17025175 (Version 1)
Quarter: 2019Q4

REPORT INFORMATION
  Report Type: Spontaneous
  Country: US (occurrence: US)
  Receive Date: 20191113
  Receipt Date: 20191113
  Transmission Date: 20200122
  Serious: Yes (Hospitalization)
  Sender: FDA-Public Use
  Company Number: US-ASTRAZENECA-2019SF58275

PATIENT
  Age: 27 Year
  Sex: Male

DRUGS (9)
  1. VALPROIC ACID. [Concomitant]
     Active Substance: VALPROIC ACID
     Route: 048
  2. OXCARBAZEPINE. [Concomitant]
     Active Substance: OXCARBAZEPINE
  3. TRAZODONE [Concomitant]
     Active Substance: TRAZODONE HYDROCHLORIDE
  4. BUSPIRONE [Concomitant]
     Active Substance: BUSPIRONE HYDROCHLORIDE
  5. CLONIDINE. [Concomitant]
     Active Substance: CLONIDINE
  6. QUETIAPINE. [Suspect]
     Active Substance: QUETIAPINE
     Dosage: RESTARTED AT LOW DOSES WITH CLOSE MONITORING AND WAS EVENTUALLY TITRATED UP
     Route: 048
  7. FLUVOXAMINE [Concomitant]
     Active Substance: FLUVOXAMINE
  8. QUETIAPINE. [Suspect]
     Active Substance: QUETIAPINE
     Route: 048
  9. HALOPERIDOL. [Suspect]
     Active Substance: HALOPERIDOL

REACTIONS (1)
  - Neuroleptic malignant syndrome [Recovered/Resolved]
